FAERS Safety Report 15765360 (Version 1)
Quarter: 2018Q4

REPORT INFORMATION
  Report Type: Spontaneous
  Country: MY (occurrence: MY)
  Receive Date: 20181227
  Receipt Date: 20181227
  Transmission Date: 20190205
  Serious: Yes (Other)
  Sender: FDA-Public Use
  Company Number: MY-SA-2018SA392163

PATIENT
  Age: 56 Year
  Sex: Male

DRUGS (1)
  1. TRIAMCINOLONE ACETONIDE. [Suspect]
     Active Substance: TRIAMCINOLONE ACETONIDE
     Indication: DIABETIC RETINAL OEDEMA
     Dosage: UNK, UNK
     Route: 031

REACTIONS (7)
  - Condition aggravated [Recovering/Resolving]
  - Drug ineffective [Unknown]
  - Toxic anterior segment syndrome [Recovering/Resolving]
  - Corneal oedema [Recovered/Resolved]
  - Vision blurred [Recovered/Resolved]
  - Vitreous opacities [Recovered/Resolved]
  - Pupil fixed [Recovered/Resolved]
